FAERS Safety Report 10036773 (Version 1)
Quarter: 2014Q1

REPORT INFORMATION
  Report Type: Spontaneous
  Country: US (occurrence: US)
  Receive Date: 20140326
  Receipt Date: 20140326
  Transmission Date: 20141002
  Serious: No
  Sender: FDA-Public Use
  Company Number: US-BIOGENIDEC-2014BI024888

PATIENT
  Age: 59 Year
  Sex: Female

DRUGS (10)
  1. TECFIDERA [Suspect]
     Indication: MULTIPLE SCLEROSIS
     Route: 048
     Dates: start: 20140204
  2. TECFIDERA [Suspect]
     Indication: MULTIPLE SCLEROSIS
     Route: 048
     Dates: start: 20140204
  3. TECFIDERA [Suspect]
     Indication: MULTIPLE SCLEROSIS
     Route: 048
     Dates: start: 20140227, end: 20140311
  4. TECFIDERA [Suspect]
     Indication: MULTIPLE SCLEROSIS
     Route: 048
     Dates: start: 20140311
  5. VALIUM [Concomitant]
  6. VICODIN [Concomitant]
  7. HYDROCHLOROTHIAZIDE [Concomitant]
  8. DIOVAN [Concomitant]
  9. FUROSEMIDE [Concomitant]
  10. LYRICA [Concomitant]

REACTIONS (2)
  - Prescribed underdose [Not Recovered/Not Resolved]
  - Gastrointestinal disorder [Unknown]
